FAERS Safety Report 16331567 (Version 1)
Quarter: 2019Q2

REPORT INFORMATION
  Report Type: Spontaneous
  Country: US (occurrence: US)
  Receive Date: 20190517
  Receipt Date: 20190517
  Transmission Date: 20190711
  Serious: Yes (Death)
  Sender: FDA-Public Use
  Company Number: None

PATIENT
  Sex: Female

DRUGS (22)
  1. CARAFATE [Concomitant]
     Active Substance: SUCRALFATE
  2. FENTANYL. [Concomitant]
     Active Substance: FENTANYL
  3. FOLIC ACID. [Concomitant]
     Active Substance: FOLIC ACID
  4. ASPIRIN. [Concomitant]
     Active Substance: ASPIRIN
  5. CALCUIM D [Concomitant]
  6. ENTOCORT [Concomitant]
     Active Substance: BUDESONIDE
  7. PEPSID, VITAMIN D [Concomitant]
  8. ATIVAN [Concomitant]
     Active Substance: LORAZEPAM
  9. VITAMIN B12 [Concomitant]
     Active Substance: CYANOCOBALAMIN
  10. NEURONTIN [Concomitant]
     Active Substance: GABAPENTIN
  11. IPRATROPIUM [Concomitant]
     Active Substance: IPRATROPIUM
  12. OXYCODONE, VITAMIN C [Concomitant]
  13. CYCLOBENZAPR [Concomitant]
     Active Substance: CYCLOBENZAPRINE
  14. A-HYDROCORT [Concomitant]
     Active Substance: HYDROCORTISONE SODIUM SUCCINATE
  15. PRILOSEC, VITAMIN D3 [Concomitant]
  16. PROAIR HFA, ZOCOR [Concomitant]
  17. ENTYVIO [Suspect]
     Active Substance: VEDOLIZUMAB
     Indication: CROHN^S DISEASE
     Dosage: ?          OTHER FREQUENCY:EVERY 8 WEEKS;?
     Route: 042
     Dates: start: 20150903
  18. CORTEF [Concomitant]
     Active Substance: HYDROCORTISONE
  19. LASIX [Concomitant]
     Active Substance: FUROSEMIDE
  20. MARINOL [Concomitant]
     Active Substance: DRONABINOL
  21. MULTI-VITAMIN [Concomitant]
     Active Substance: .ALPHA.-TOCOPHEROL ACETATE, DL-\ASCORBIC ACID\CYANOCOBALAMIN\FLUORIDE ION\FOLIC ACID\NIACIN\PYRIDOXINE\RIBOFLAVIN\THIAMINE\VITAMIN A\VITAMIN D
  22. NOVOLOG, VALSARTAN [Concomitant]

REACTIONS (1)
  - Death [None]
